FAERS Safety Report 7990259-6 (Version None)
Quarter: 2011Q4

REPORT INFORMATION
  Report Type: 
  Country: None (occurrence: None)
  Receive Date: 20111219
  Receipt Date: 20110610
  Transmission Date: 20120403
  Serious: No
  Sender: FDA-Public Use
  Company Number: US-ASTRAZENECA-2011SE35929

PATIENT
  Sex: Female

DRUGS (16)
  1. COUMADIN [Concomitant]
     Route: 048
  2. TOPROL-XL [Concomitant]
     Route: 048
  3. VITAMIN D [Concomitant]
     Dosage: 5000 UNIT WITH UNKNOWN FREQUENCY
     Route: 048
  4. SLOW RELASE IRON [Concomitant]
     Dosage: 142 MG (45 MG IRON)
  5. DIOVAN [Concomitant]
     Route: 048
  6. CLONAZEPAM [Concomitant]
     Route: 048
  7. FOLIC ACID [Concomitant]
     Route: 048
  8. CRESTOR [Suspect]
     Route: 048
  9. TIROSINT [Concomitant]
     Route: 048
  10. FISH OIL [Concomitant]
     Dosage: 1000 MG WITH UNKNOWN FREQUENCY
  11. ENALAPRIL MALEATE [Concomitant]
     Route: 048
  12. ASPIRIN [Concomitant]
     Route: 048
  13. FUROSEMIDE [Concomitant]
     Route: 048
  14. VITAMIN B12 FOLIC ACID [Concomitant]
     Dosage: 500 MCG + 400 MCG WITH UNKNOWN FREQUENCY
  15. PROTONIX [Concomitant]
     Route: 048
  16. ZETIA [Concomitant]
     Route: 048

REACTIONS (6)
  - HYPERCHOLESTEROLAEMIA [None]
  - HYPOTHYROIDISM [None]
  - VITAMIN D DEFICIENCY [None]
  - DEAFNESS NEUROSENSORY [None]
  - ARTERIOSCLEROSIS CORONARY ARTERY [None]
  - HYPERTENSION [None]
